FAERS Safety Report 7326422-7 (Version None)
Quarter: 2011Q1

REPORT INFORMATION
  Report Type: 
  Country: None (occurrence: None)
  Receive Date: 20110218
  Receipt Date: 20110203
  Transmission Date: 20110831
  Serious: Yes (Hospitalization, Other)
  Sender: FDA-Public Use
  Company Number: 2011BI004240

PATIENT

DRUGS (2)
  1. RITUXIMAB [Concomitant]
  2. ZEVALIN [Suspect]
     Dosage: 5 MCI; 1X; IV
     Route: 042

REACTIONS (4)
  - LEUKOPENIA [None]
  - PNEUMONIA [None]
  - THROMBOCYTOPENIA [None]
  - RESPIRATORY FAILURE [None]
